FAERS Safety Report 9620396 (Version 1)
Quarter: 2013Q4

REPORT INFORMATION
  Report Type: Spontaneous
  Country: US (occurrence: US)
  Receive Date: 20131015
  Receipt Date: 20131015
  Transmission Date: 20140711
  Serious: No
  Sender: FDA-Public Use
  Company Number: -SAAVPROD-BMS16533770

PATIENT
  Age: 83 Year
  Sex: Female

DRUGS (1)
  1. AVALIDE [Suspect]
     Indication: HYPERTENSION
     Dosage: 1DF= 150/12.5MG . NDC: 1147923. TABLET NO: 2875
     Dates: start: 2011

REACTIONS (2)
  - Dizziness [Unknown]
  - Visual impairment [Unknown]
